FAERS Safety Report 21410655 (Version 1)
Quarter: 2022Q4

REPORT INFORMATION
  Report Type: Spontaneous
  Country: US (occurrence: None)
  Receive Date: 20221004
  Receipt Date: 20221004
  Transmission Date: 20230112
  Serious: Yes (Hospitalization)
  Sender: FDA-Public Use
  Company Number: None

PATIENT
  Age: 58 Year
  Sex: Male
  Weight: 71.1 kg

DRUGS (1)
  1. TOPOTECAN [Suspect]
     Active Substance: TOPOTECAN HYDROCHLORIDE
     Dates: end: 20210917

REACTIONS (4)
  - Hypocalcaemia [None]
  - Hypomagnesaemia [None]
  - Dyspnoea [None]
  - Anaemia [None]

NARRATIVE: CASE EVENT DATE: 20220929
